FAERS Safety Report 12848818 (Version 1)
Quarter: 2016Q4

REPORT INFORMATION
  Report Type: Spontaneous
  Country: US (occurrence: US)
  Receive Date: 20161014
  Receipt Date: 20161014
  Transmission Date: 20170207
  Serious: No
  Sender: FDA-Public Use
  Company Number: US-JNJFOC-20160810598

PATIENT
  Sex: Female

DRUGS (1)
  1. TYLENOL EXTRA STRENGTH [Suspect]
     Active Substance: ACETAMINOPHEN
     Indication: SCIATICA
     Dosage: EVERY 8 HOURS
     Route: 048

REACTIONS (5)
  - Infrequent bowel movements [Unknown]
  - Hypophagia [Unknown]
  - Product use issue [Unknown]
  - Off label use [Unknown]
  - Product label issue [Unknown]
